FAERS Safety Report 8577434-7 (Version None)
Quarter: 2012Q3

REPORT INFORMATION
  Report Type: 
  Country: None (occurrence: None)
  Receive Date: 20120807
  Receipt Date: 20120801
  Transmission Date: 20120928
  Serious: Yes (Hospitalization)
  Sender: FDA-Public Use
  Company Number: PHHY2012TR066280

PATIENT
  Age: 42 Year
  Sex: Female

DRUGS (4)
  1. MESALAMINE [Concomitant]
     Indication: COLITIS ULCERATIVE
  2. PREDNISONE [Suspect]
     Indication: COLITIS ULCERATIVE
     Route: 048
  3. CORTICOSTEROIDS [Suspect]
     Indication: COLITIS ULCERATIVE
     Route: 048
  4. AZATHIOPRINE SODIUM [Suspect]
     Indication: COLITIS ULCERATIVE
     Dosage: 100 MG, UNK

REACTIONS (4)
  - KAPOSI'S SARCOMA [None]
  - ERYTHEMA [None]
  - SKIN LESION [None]
  - PAPULE [None]
